FAERS Safety Report 5857906-6 (Version None)
Quarter: 2008Q3

REPORT INFORMATION
  Report Type: 
  Country: None (occurrence: None)
  Receive Date: 20080825
  Receipt Date: 20080825
  Transmission Date: 20090109
  Serious: Yes (Other)
  Sender: FDA-Public Use
  Company Number: None

PATIENT
  Age: 63 Year
  Sex: Female
  Weight: 75.7507 kg

DRUGS (1)
  1. NITROGLYCERIN [Suspect]
     Indication: CHEST PAIN

REACTIONS (9)
  - DRUG ADMINISTRATION ERROR [None]
  - FEAR [None]
  - FEELING ABNORMAL [None]
  - HEADACHE [None]
  - ILL-DEFINED DISORDER [None]
  - MOVEMENT DISORDER [None]
  - PAIN [None]
  - VISUAL ACUITY REDUCED [None]
  - VOMITING [None]
